FAERS Safety Report 24655695 (Version 2)
Quarter: 2025Q3

REPORT INFORMATION
  Report Type: Spontaneous
  Country: JP (occurrence: JP)
  Receive Date: 20241123
  Receipt Date: 20250810
  Transmission Date: 20251021
  Serious: Yes (Hospitalization)
  Sender: ALEXION PHARMACEUTICALS
  Company Number: JP-ASTRAZENECA-240128569_010520_P_1

PATIENT
  Age: 6 Decade
  Sex: Female

DRUGS (11)
  1. FASLODEX [Suspect]
     Active Substance: FULVESTRANT
     Indication: Breast cancer recurrent
  2. FASLODEX [Suspect]
     Active Substance: FULVESTRANT
  3. TRUQAP [Suspect]
     Active Substance: CAPIVASERTIB
     Indication: Breast cancer recurrent
  4. PALBOCICLIB [Concomitant]
     Active Substance: PALBOCICLIB
     Indication: Breast cancer recurrent
  5. Lh-rh [Concomitant]
     Indication: Breast cancer recurrent
     Route: 065
  6. Lh-rh [Concomitant]
     Route: 065
  7. ANASTROZOLE [Concomitant]
     Active Substance: ANASTROZOLE
     Indication: Breast cancer recurrent
     Route: 065
  8. MEDROXYPROGESTERONE ACETATE [Concomitant]
     Active Substance: MEDROXYPROGESTERONE ACETATE
     Indication: Breast cancer recurrent
     Route: 065
  9. DOXORUBICIN HYDROCHLORIDE [Concomitant]
     Active Substance: DOXORUBICIN HYDROCHLORIDE
     Indication: Breast cancer recurrent
     Route: 065
  10. CYCLOPHOSPHAMIDE [Concomitant]
     Active Substance: CYCLOPHOSPHAMIDE
     Indication: Breast cancer recurrent
     Route: 065
  11. PACLITAXEL [Concomitant]
     Active Substance: PACLITAXEL
     Indication: Breast cancer recurrent
     Route: 065

REACTIONS (1)
  - Drug eruption [Recovering/Resolving]

NARRATIVE: CASE EVENT DATE: 20240101
